FAERS Safety Report 5225591-2 (Version None)
Quarter: 2007Q1

REPORT INFORMATION
  Report Type: 
  Country: None (occurrence: None)
  Receive Date: 20061201
  Receipt Date: 20060814
  Transmission Date: 20070707
  Serious: Yes (Other)
  Sender: FDA-Public Use
  Company Number: US200608002978

PATIENT
  Age: 63 Year
  Sex: Male

DRUGS (2)
  1. CYMBALTA [Suspect]
     Indication: DEPRESSION
     Dosage: 30 MG, DAILY (1/D)
     Dates: start: 20060101
  2. HYDROCHLOROTHIAZIDE [Concomitant]

REACTIONS (5)
  - AMNESIA [None]
  - DRUG INEFFECTIVE [None]
  - DYSSTASIA [None]
  - GRAND MAL CONVULSION [None]
  - PELVIC PAIN [None]
